FAERS Safety Report 15296552 (Version 1)
Quarter: 2018Q3

REPORT INFORMATION
  Report Type: Spontaneous
  Country: IE (occurrence: IE)
  Receive Date: 20180820
  Receipt Date: 20180820
  Transmission Date: 20181010
  Serious: Yes (Death, Hospitalization, Other)
  Sender: FDA-Public Use
  Company Number: IE-ASTELLAS-2018US036376

PATIENT
  Age: 50 Year
  Sex: Male

DRUGS (5)
  1. POSACONAZOLE [Concomitant]
     Active Substance: POSACONAZOLE
     Indication: PROPHYLAXIS
     Route: 065
  2. TACROLIMUS. [Suspect]
     Active Substance: TACROLIMUS
     Indication: STEM CELL TRANSPLANT
     Dosage: 0.2 MG, ONCE DAILY
     Route: 048
  3. VALACICLOVIR [Concomitant]
     Active Substance: VALACYCLOVIR HYDROCHLORIDE
     Indication: PROPHYLAXIS
     Dosage: UNK UNK, UNKNOWN FREQ.
     Route: 065
  4. PHENOXYMETHYLPENICILLIN [Concomitant]
     Active Substance: PENICILLIN V
     Indication: PROPHYLAXIS
     Dosage: UNK UNK, UNKNOWN FREQ.
     Route: 065
  5. PREDNISOLONE. [Concomitant]
     Active Substance: PREDNISOLONE
     Indication: STEM CELL TRANSPLANT
     Route: 065

REACTIONS (15)
  - Febrile neutropenia [Unknown]
  - Graft versus host disease in liver [Unknown]
  - Influenza [Unknown]
  - Bronchopulmonary aspergillosis [Fatal]
  - Graft versus host disease in skin [Unknown]
  - Supraventricular tachycardia [Recovering/Resolving]
  - Abnormal behaviour [Unknown]
  - Adenovirus infection [Unknown]
  - Proteus infection [Unknown]
  - Neutropenic infection [Unknown]
  - Stenotrophomonas test positive [Unknown]
  - Product use in unapproved indication [Unknown]
  - Circulatory collapse [Unknown]
  - Hypotension [Recovering/Resolving]
  - Citrobacter infection [Unknown]
